FAERS Safety Report 10861197 (Version 1)
Quarter: 2015Q1

REPORT INFORMATION
  Report Type: Spontaneous
  Country: US (occurrence: None)
  Receive Date: 20150218
  Receipt Date: 20150218
  Transmission Date: 20150721
  Serious: Yes (Hospitalization, Other)
  Sender: FDA-Public Use
  Company Number: None

PATIENT
  Age: 88 Year
  Sex: Male
  Weight: 70.76 kg

DRUGS (23)
  1. POTASSIUM CHLORIDE ER [Concomitant]
     Active Substance: POTASSIUM CHLORIDE
  2. OMEPRAZOLE DR [Concomitant]
     Active Substance: OMEPRAZOLE
  3. GUAIFENESIN ER [Concomitant]
  4. APAP [Concomitant]
     Active Substance: ACETAMINOPHEN
  5. ISOSORBIDE DINITRATE. [Concomitant]
     Active Substance: ISOSORBIDE DINITRATE
  6. GLUCERNA [Concomitant]
     Active Substance: AMINO ACIDS\DEXTROSE\ELECTROLYTES NOS\SOYBEAN OIL\VITAMINS
  7. TAMIFLU [Concomitant]
     Active Substance: OSELTAMIVIR PHOSPHATE
  8. MVI [Concomitant]
     Active Substance: VITAMINS
  9. FERROUS SULFATE [Concomitant]
     Active Substance: FERROUS SULFATE\FERROUS SULFATE, DRIED
  10. INSULIN GLARGINE [Concomitant]
     Active Substance: INSULIN GLARGINE
  11. MAG HYDROXIDE [Concomitant]
  12. DALIRESP [Suspect]
     Active Substance: ROFLUMILAST
     Indication: CHRONIC OBSTRUCTIVE PULMONARY DISEASE
     Dosage: 1 PILL
     Route: 048
     Dates: start: 20141212, end: 20150206
  13. DRONABINOL. [Concomitant]
     Active Substance: DRONABINOL
  14. NIFEDIPINE ER [Concomitant]
     Active Substance: NIFEDIPINE
  15. DOCUSATE SODIUM. [Concomitant]
     Active Substance: DOCUSATE SODIUM
  16. LATANOPROST. [Concomitant]
     Active Substance: LATANOPROST
  17. SIMVASTATIN. [Concomitant]
     Active Substance: SIMVASTATIN
  18. DUONEB [Concomitant]
     Active Substance: ALBUTEROL SULFATE\IPRATROPIUM BROMIDE
  19. WARFARIN [Concomitant]
     Active Substance: WARFARIN
  20. SENNA [Concomitant]
     Active Substance: SENNA LEAF\SENNOSIDES\SENNOSIDES A AND B
  21. CLONIDINE. [Concomitant]
     Active Substance: CLONIDINE
  22. FUROSEMIDE. [Concomitant]
     Active Substance: FUROSEMIDE
  23. MELATONIN [Concomitant]
     Active Substance: MELATONIN

REACTIONS (3)
  - Decreased appetite [None]
  - Weight decreased [None]
  - Chronic obstructive pulmonary disease [None]

NARRATIVE: CASE EVENT DATE: 20150206
